FAERS Safety Report 7353155-3 (Version None)
Quarter: 2011Q1

REPORT INFORMATION
  Report Type: 
  Country: None (occurrence: None)
  Receive Date: 20110315
  Receipt Date: 20110309
  Transmission Date: 20110831
  Serious: Yes (Death)
  Sender: FDA-Public Use
  Company Number: US-ALEXION-A201100297

PATIENT
  Sex: Male

DRUGS (7)
  1. PREDNISONE [Concomitant]
     Dosage: UNK
     Dates: end: 20110210
  2. ADVAIR DISKUS 100/50 [Concomitant]
     Indication: CHRONIC OBSTRUCTIVE PULMONARY DISEASE
     Dosage: UNK
     Dates: end: 20110210
  3. PROCRIT                            /00909301/ [Concomitant]
     Dosage: UNK
     Dates: end: 20110210
  4. DECITABINE [Concomitant]
     Indication: MYELODYSPLASTIC SYNDROME
  5. FOLTX [Concomitant]
     Dosage: UNK
     Dates: end: 20110210
  6. SOLIRIS [Suspect]
     Indication: PAROXYSMAL NOCTURNAL HAEMOGLOBINURIA
     Dosage: UNK
     Route: 042
     Dates: end: 20100913
  7. METOPROLOL [Concomitant]
     Indication: HYPERTENSION
     Dosage: UNK
     Dates: end: 20110210

REACTIONS (1)
  - DEATH [None]
